FAERS Safety Report 19465241 (Version 1)
Quarter: 2021Q2

REPORT INFORMATION
  Report Type: Spontaneous
  Country: US (occurrence: US)
  Receive Date: 20210627
  Receipt Date: 20210627
  Transmission Date: 20210717
  Serious: No
  Sender: FDA-Public Use
  Company Number: US-CELGENEUS-USA-20210605858

PATIENT
  Sex: Female

DRUGS (2)
  1. REVLIMID [Suspect]
     Active Substance: LENALIDOMIDE
     Indication: HODGKIN^S DISEASE
     Dosage: 20 MILLIGRAM
     Route: 048
     Dates: start: 20130522
  2. REVLIMID [Suspect]
     Active Substance: LENALIDOMIDE
     Indication: HODGKIN^S DISEASE NODULAR SCLEROSIS
     Dosage: 10 MILLIGRAM
     Route: 048
     Dates: start: 202105

REACTIONS (1)
  - Full blood count decreased [Recovered/Resolved]
